FAERS Safety Report 17876013 (Version 1)
Quarter: 2020Q2

REPORT INFORMATION
  Report Type: Spontaneous
  Country: FR (occurrence: FR)
  Receive Date: 20200609
  Receipt Date: 20200609
  Transmission Date: 20200714
  Serious: Yes (Hospitalization, Other)
  Sender: FDA-Public Use
  Company Number: FR-SA-2020SA145943

PATIENT

DRUGS (20)
  1. ATORVASTATIN CALCIUM. [Suspect]
     Active Substance: ATORVASTATIN CALCIUM
     Indication: PROPHYLAXIS
     Dosage: 10 MG, QD (0-0-1)
     Route: 048
     Dates: start: 20200420, end: 20200423
  2. SERETIDE [Concomitant]
     Active Substance: FLUTICASONE PROPIONATE\SALMETEROL XINAFOATE
     Dosage: 4 DF, QD (2-0-0)
     Route: 055
     Dates: start: 20200423
  3. TARDYFERON B9 [FERROUS SULFATE;FOLIC ACID] [Concomitant]
     Active Substance: FERROUS SULFATE\FOLIC ACID
     Dosage: 1-0-1
     Route: 048
  4. VENLAFAXINE [Concomitant]
     Active Substance: VENLAFAXINE HYDROCHLORIDE
     Dosage: 300 MG, QD (2-0-0)
     Route: 048
  5. DIAZEPAM ARROW [Concomitant]
     Dosage: 40 MG, QD (1-1-1-1)
     Route: 048
     Dates: start: 20200421, end: 20200422
  6. BECILAN [Concomitant]
     Active Substance: PYRIDOXINE
     Dosage: 250 MG, QD
     Route: 042
     Dates: start: 20200420, end: 20200423
  7. TIORFAN [Concomitant]
     Active Substance: RACECADOTRIL
     Indication: CLOSTRIDIUM DIFFICILE COLITIS
     Dosage: 1-1-1
     Route: 048
     Dates: start: 20200422, end: 20200423
  8. LOVENOX [Suspect]
     Active Substance: ENOXAPARIN SODIUM
     Indication: VASCULAR DISORDER PROPHYLAXIS
     Dosage: UNK
     Route: 058
     Dates: start: 20200420, end: 20200423
  9. NICOTINAMIDE RENAUDIN [Concomitant]
     Dosage: 500 MG, QD
     Route: 042
     Dates: start: 20200420, end: 20200423
  10. MECIR [Concomitant]
     Active Substance: TAMSULOSIN HYDROCHLORIDE
     Dosage: 0.4 MG, QD (0-0-1)
     Route: 048
     Dates: start: 20200423
  11. SPECIAFOLDINE [Concomitant]
     Active Substance: FOLIC ACID
     Dosage: 1 DF, QD (0-1-0)
     Route: 048
     Dates: start: 20200422, end: 20200423
  12. DIFICLIR [Suspect]
     Active Substance: FIDAXOMICIN
     Indication: CLOSTRIDIUM DIFFICILE COLITIS
     Dosage: 400 MG, QD
     Route: 048
     Dates: start: 20200421, end: 20200424
  13. ROSUVASTATINE ACCORD [Concomitant]
     Active Substance: ROSUVASTATIN CALCIUM
     Dosage: 5 MG, QD (0-0-1)
     Route: 048
     Dates: end: 20200420
  14. AUGMENTIN [Concomitant]
     Active Substance: AMOXICILLIN\CLAVULANATE POTASSIUM
     Dosage: UNK
     Route: 048
     Dates: start: 20200408, end: 20200415
  15. OMEXEL [Concomitant]
     Active Substance: TAMSULOSIN HYDROCHLORIDE
     Dosage: 0.4 MG, QD (1-0-0)
     Route: 048
     Dates: start: 20200416
  16. THIAMINE HCL [Concomitant]
     Active Substance: THIAMINE HYDROCHLORIDE
     Dosage: 500 MG, QD
     Route: 042
     Dates: start: 20200420, end: 20200423
  17. METFORMINE [METFORMIN] [Concomitant]
     Active Substance: METFORMIN HYDROCHLORIDE
     Dosage: 1000 MG, QD (1-0-1)
     Route: 048
     Dates: end: 20200422
  18. PERINDOPRIL [Concomitant]
     Active Substance: PERINDOPRIL
     Dosage: 6 MG, QD (0-0.5-1)
     Route: 048
     Dates: end: 20200420
  19. ACETYLSALICYLIC ACID [Concomitant]
     Active Substance: ASPIRIN
     Dosage: 100 MG, QD (0-1-0)
     Route: 048
  20. SERESTA [Concomitant]
     Active Substance: OXAZEPAM
     Dosage: 80 MG, QD
     Route: 048
     Dates: start: 20200422

REACTIONS (1)
  - Neutropenia [Not Recovered/Not Resolved]

NARRATIVE: CASE EVENT DATE: 20200423
